FAERS Safety Report 5238682-7 (Version None)
Quarter: 2007Q1

REPORT INFORMATION
  Report Type: 
  Country: None (occurrence: None)
  Receive Date: 20070214
  Receipt Date: 20070214
  Transmission Date: 20070707
  Serious: Yes (Life-Threatening, Hospitalization, Disabling, Other)
  Sender: FDA-Public Use
  Company Number: None

PATIENT
  Sex: Female
  Weight: 68.0396 kg

DRUGS (1)
  1. ACETAMINOPHEN [Suspect]
     Indication: BACK PAIN
     Dosage: 2 TABS 4XDAY
     Dates: start: 20000101, end: 20060101

REACTIONS (4)
  - HAEMOPTYSIS [None]
  - METAL POISONING [None]
  - NERVOUS SYSTEM DISORDER [None]
  - ULCER HAEMORRHAGE [None]
